FAERS Safety Report 11441055 (Version 1)
Quarter: 2015Q3

REPORT INFORMATION
  Report Type: Spontaneous
  Country: US (occurrence: US)
  Receive Date: 20150821
  Receipt Date: 20150821
  Transmission Date: 20151125
  Serious: No
  Sender: FDA-Public Use
  Company Number: US-ELI_LILLY_AND_COMPANY-US200801006510

PATIENT
  Age: 34 Year
  Sex: Male

DRUGS (2)
  1. CYMBALTA [Suspect]
     Active Substance: DULOXETINE HYDROCHLORIDE
  2. TESTOSTERONE. [Concomitant]
     Active Substance: TESTOSTERONE
     Route: 061

REACTIONS (2)
  - Muscle twitching [Unknown]
  - Memory impairment [Not Recovered/Not Resolved]
